FAERS Safety Report 14796590 (Version 2)
Quarter: 2018Q3

REPORT INFORMATION
  Report Type: Report from Study
  Country: US (occurrence: US)
  Receive Date: 20180423
  Receipt Date: 20180720
  Transmission Date: 20181010
  Serious: No
  Sender: FDA-Public Use
  Company Number: US-AMGEN-USASL2018048644

PATIENT
  Age: 67 Year
  Sex: Female

DRUGS (2)
  1. REPATHA [Suspect]
     Active Substance: EVOLOCUMAB
     Indication: BLOOD CHOLESTEROL ABNORMAL
     Dosage: 140 MG, Q2WK
     Route: 058
     Dates: start: 201712
  2. REPATHA [Suspect]
     Active Substance: EVOLOCUMAB
     Indication: CARDIAC DISORDER

REACTIONS (6)
  - Wrong technique in product usage process [Unknown]
  - Drug dose omission [Unknown]
  - Application site discolouration [Recovered/Resolved]
  - Injury associated with device [Unknown]
  - Accidental exposure to product [Unknown]
  - Concussion [Unknown]

NARRATIVE: CASE EVENT DATE: 2018
